FAERS Safety Report 4300396-5 (Version None)
Quarter: 2004Q1

REPORT INFORMATION
  Report Type: 
  Country: None (occurrence: None)
  Receive Date: 20040218
  Receipt Date: 20040204
  Transmission Date: 20041129
  Serious: Yes (Hospitalization)
  Sender: FDA-Public Use
  Company Number: FR_040203542

PATIENT
  Age: 70 Year
  Sex: Female

DRUGS (4)
  1. EVISTA [Suspect]
     Indication: OSTEOPOROSIS
     Dosage: 60 MG/DAY
     Dates: start: 20020501, end: 20031111
  2. ZOMIG [Concomitant]
  3. ATORVASTATIN CALCIUM [Concomitant]
  4. KARDEGIC (ACETYLSALICYLATE LYSINE) [Concomitant]

REACTIONS (8)
  - APHASIA [None]
  - ATHEROSCLEROSIS [None]
  - CALCINOSIS [None]
  - DYSARTHRIA [None]
  - FACIAL PALSY [None]
  - ISCHAEMIC STROKE [None]
  - MIGRAINE [None]
  - PLATELET AGGREGATION DECREASED [None]
